FAERS Safety Report 12174270 (Version 1)
Quarter: 2016Q1

REPORT INFORMATION
  Report Type: Spontaneous
  Country: DE (occurrence: DE)
  Receive Date: 20160313
  Receipt Date: 20160313
  Transmission Date: 20160526
  Serious: Yes (Other)
  Sender: FDA-Public Use
  Company Number: DE-B.I. PHARMACEUTICALS,INC./RIDGEFIELD-2015-BI-65460DE

PATIENT
  Age: 26 Year
  Sex: Male
  Weight: 67 kg

DRUGS (4)
  1. DULCOLAX NOS [Suspect]
     Active Substance: BISACODYL OR DOCUSATE SODIUM
     Route: 065
  2. LAXOBERAL [Suspect]
     Active Substance: SODIUM PICOSULFATE
     Indication: CONSTIPATION
     Dosage: DOSE PER APPLICATION AND DAILY DOSE: 15-16 DROPS
     Route: 065
     Dates: start: 201411
  3. LAXOBERAL [Suspect]
     Active Substance: SODIUM PICOSULFATE
     Route: 065
  4. DULCOLAX NOS [Suspect]
     Active Substance: BISACODYL OR DOCUSATE SODIUM
     Indication: CONSTIPATION
     Dosage: DOSE PER APPLICATION AND DAILY DOSE: 1-2 DRAGEES
     Route: 065
     Dates: start: 201411

REACTIONS (4)
  - Drug dependence [Not Recovered/Not Resolved]
  - Drug abuse [Unknown]
  - Drug tolerance [Unknown]
  - Irritable bowel syndrome [Unknown]
